FAERS Safety Report 21292696 (Version 1)
Quarter: 2022Q3

REPORT INFORMATION
  Report Type: Spontaneous
  Country: MX (occurrence: MX)
  Receive Date: 20220905
  Receipt Date: 20220905
  Transmission Date: 20221027
  Serious: Yes (Other)
  Sender: FDA-Public Use
  Company Number: MX-BoehringerIngelheim-2022-BI-190359

PATIENT
  Age: 51 Year
  Sex: Male
  Weight: 70 kg

DRUGS (10)
  1. EMPAGLIFLOZIN\METFORMIN HYDROCHLORIDE [Suspect]
     Active Substance: EMPAGLIFLOZIN\METFORMIN HYDROCHLORIDE
     Indication: Diabetes mellitus
     Dosage: 12.5X1000, 1 TABLET IN THE MORNING AND ANOTHER AT NIGHT
     Dates: start: 202201
  2. EMPAGLIFLOZIN\METFORMIN HYDROCHLORIDE [Suspect]
     Active Substance: EMPAGLIFLOZIN\METFORMIN HYDROCHLORIDE
     Indication: Diuretic therapy
  3. ZYPREXA [Concomitant]
     Active Substance: OLANZAPINE
     Indication: Depression
     Route: 048
     Dates: start: 202205
  4. ZYPREXA [Concomitant]
     Active Substance: OLANZAPINE
     Indication: Anxiety
  5. ZYPREXA [Concomitant]
     Active Substance: OLANZAPINE
     Indication: Drug therapy
  6. PROZAC [Concomitant]
     Active Substance: FLUOXETINE HYDROCHLORIDE
     Indication: Product used for unknown indication
     Dosage: 1 TABLET PER DAY
     Dates: start: 202205
  7. CORIOVANT [Concomitant]
     Indication: Product used for unknown indication
     Dosage: 160X25
  8. AMLODIPINE [Concomitant]
     Active Substance: AMLODIPINE BESYLATE
     Indication: Product used for unknown indication
  9. ATORVASTATIN [Concomitant]
     Active Substance: ATORVASTATIN
     Indication: Product used for unknown indication
  10. CRONOCAPS [Concomitant]
     Indication: Product used for unknown indication

REACTIONS (3)
  - Bladder catheterisation [Unknown]
  - Prostate cancer [Unknown]
  - Therapeutic response unexpected [Unknown]

NARRATIVE: CASE EVENT DATE: 20220101
